FAERS Safety Report 13502285 (Version 1)
Quarter: 2017Q2

REPORT INFORMATION
  Report Type: Spontaneous
  Country: US (occurrence: US)
  Receive Date: 20170502
  Receipt Date: 20170502
  Transmission Date: 20170830
  Serious: Yes (Congenital Anomaly, Other)
  Sender: FDA-Public Use
  Company Number: US-ACCORD-051029

PATIENT
  Sex: Male
  Weight: 1.3 kg

DRUGS (5)
  1. HYDROXYCHLOROQUINE [Concomitant]
     Active Substance: HYDROXYCHLOROQUINE
     Route: 064
  2. MYCOPHENOLIC ACID. [Suspect]
     Active Substance: MYCOPHENOLIC ACID
     Indication: PRODUCT USED FOR UNKNOWN INDICATION
     Dosage: MMF 1000 MG TWICE DAILY,
     Route: 064
  3. ACETYLSALICYLIC ACID [Concomitant]
     Active Substance: ASPIRIN
     Route: 064
  4. PREDNISONE. [Concomitant]
     Active Substance: PREDNISONE
     Route: 064
  5. HEPARIN [Concomitant]
     Active Substance: HEPARIN SODIUM
     Dosage: LOW-MOLECULAR-WEIGHT HEPARIN
     Route: 064

REACTIONS (8)
  - Intraventricular haemorrhage [Recovered/Resolved]
  - Tricuspid valve incompetence [Unknown]
  - Right ventricular hypertrophy [Unknown]
  - Atrial septal defect [Unknown]
  - Cardiomegaly [Unknown]
  - Patent ductus arteriosus [Recovering/Resolving]
  - Foetal exposure during pregnancy [Unknown]
  - Vascular malformation [Recovering/Resolving]
